FAERS Safety Report 7900845-7 (Version None)
Quarter: 2011Q4

REPORT INFORMATION
  Report Type: 
  Country: None (occurrence: None)
  Receive Date: 20111108
  Receipt Date: 20111108
  Transmission Date: 20120403
  Serious: Yes (Hospitalization)
  Sender: FDA-Public Use
  Company Number: None

PATIENT
  Age: 30 Year
  Sex: Female
  Weight: 52.163 kg

DRUGS (2)
  1. TRAMADOL HCL [Suspect]
     Indication: FIBROMYALGIA
     Dosage: 100MG
     Route: 048
     Dates: start: 20110927, end: 20111107
  2. TRAMADOL HCL [Suspect]
     Indication: PAIN
     Dosage: 100MG
     Route: 048
     Dates: start: 20110927, end: 20111107

REACTIONS (4)
  - MUSCLE TWITCHING [None]
  - UNRESPONSIVE TO STIMULI [None]
  - GRAND MAL CONVULSION [None]
  - DROOLING [None]
